FAERS Safety Report 11278012 (Version 1)
Quarter: 2015Q3

REPORT INFORMATION
  Report Type: Spontaneous
  Country: CH (occurrence: CH)
  Receive Date: 20150717
  Receipt Date: 20150717
  Transmission Date: 20151125
  Serious: Yes (Life-Threatening, Hospitalization, Disabling, Other)
  Sender: FDA-Public Use
  Company Number: CH-AMGEN-CHESP2015070720

PATIENT
  Age: 54 Year
  Sex: Female

DRUGS (3)
  1. METHOTREXATE SODIUM. [Suspect]
     Active Substance: METHOTREXATE SODIUM
     Indication: SPONDYLOARTHROPATHY
     Dosage: 15 MG, WEEKLY
     Route: 058
     Dates: start: 201401, end: 201503
  2. LYRICA [Concomitant]
     Active Substance: PREGABALIN
     Dosage: 50 MG, 2X/DAY
     Route: 048
     Dates: start: 20150305, end: 20150307
  3. ENBREL [Suspect]
     Active Substance: ETANERCEPT
     Indication: PRODUCT USED FOR UNKNOWN INDICATION
     Dosage: 50 MG, WEEKLY
     Route: 058
     Dates: start: 20140918, end: 201503

REACTIONS (4)
  - Infection in an immunocompromised host [Recovered/Resolved]
  - Septic shock [Recovered/Resolved]
  - Immunosuppression [Recovered/Resolved]
  - Meningococcal bacteraemia [Recovered/Resolved]

NARRATIVE: CASE EVENT DATE: 201503
